FAERS Safety Report 6657439-3 (Version None)
Quarter: 2010Q1

REPORT INFORMATION
  Report Type: 
  Country: None (occurrence: None)
  Receive Date: 20100330
  Receipt Date: 20100318
  Transmission Date: 20100710
  Serious: Yes (Other)
  Sender: FDA-Public Use
  Company Number: US-PFIZER INC-2010035460

PATIENT
  Sex: Female

DRUGS (1)
  1. CHANTIX [Suspect]
     Indication: SMOKING CESSATION THERAPY
     Dosage: UNK
     Route: 048
     Dates: start: 20081117, end: 20081201

REACTIONS (15)
  - ANXIETY [None]
  - CONVULSION [None]
  - DEPRESSION [None]
  - DEREALISATION [None]
  - DYSARTHRIA [None]
  - FALL [None]
  - HEAD INJURY [None]
  - HEADACHE [None]
  - INSOMNIA [None]
  - LOSS OF CONSCIOUSNESS [None]
  - MEMORY IMPAIRMENT [None]
  - NAUSEA [None]
  - PARANOIA [None]
  - SKELETAL INJURY [None]
  - VOMITING [None]
